FAERS Safety Report 4499066-2 (Version None)
Quarter: 2004Q4

REPORT INFORMATION
  Report Type: 
  Country: None (occurrence: None)
  Receive Date: 20041111
  Receipt Date: 20041022
  Transmission Date: 20050328
  Serious: Yes (Hospitalization, Other)
  Sender: FDA-Public Use
  Company Number: JP-BRISTOL-MYERS SQUIBB COMPANY-12747127

PATIENT
  Age: 11 Year
  Sex: Male

DRUGS (8)
  1. IFOMIDE [Suspect]
     Indication: GERM CELL CANCER
     Route: 041
     Dates: start: 20040921, end: 20040925
  2. LASTET [Suspect]
     Indication: GERM CELL CANCER
     Route: 041
     Dates: start: 20040921, end: 20040925
  3. UROMITEXAN [Suspect]
     Route: 042
     Dates: start: 20040921, end: 20040925
  4. RANDA [Suspect]
     Indication: GERM CELL CANCER
     Route: 041
     Dates: start: 20040921, end: 20040925
  5. SANDOSTATIN [Suspect]
     Indication: ABDOMINAL PAIN
     Route: 041
     Dates: start: 20040923, end: 20040927
  6. PRIMPERAN INJ [Suspect]
     Route: 041
     Dates: start: 20040921, end: 20040925
  7. ZOFRAN [Concomitant]
     Indication: PREMEDICATION
     Route: 040
     Dates: start: 20040921, end: 20041005
  8. GASTER [Concomitant]
     Indication: PREMEDICATION
     Route: 040
     Dates: start: 20040920, end: 20041010

REACTIONS (1)
  - PANCREATITIS [None]
